FAERS Safety Report 13020228 (Version 1)
Quarter: 2016Q4

REPORT INFORMATION
  Report Type: Spontaneous
  Country: FR (occurrence: FR)
  Receive Date: 20161212
  Receipt Date: 20161212
  Transmission Date: 20170207
  Serious: Yes (Hospitalization, Disabling, Other)
  Sender: FDA-Public Use
  Company Number: FR-PFIZER INC-2016564966

PATIENT
  Age: 63 Year
  Sex: Female

DRUGS (1)
  1. SUTENT [Suspect]
     Active Substance: SUNITINIB MALATE
     Indication: BREAST CANCER
     Dosage: 37.5 MG, 1X/DAY
     Route: 048
     Dates: start: 20120101, end: 20150401

REACTIONS (3)
  - Intermittent claudication [Recovered/Resolved]
  - Pain in extremity [Recovered/Resolved]
  - Arterial disorder [Not Recovered/Not Resolved]

NARRATIVE: CASE EVENT DATE: 20150701
